FAERS Safety Report 9664721 (Version 2)
Quarter: 2014Q1

REPORT INFORMATION
  Report Type: Spontaneous
  Country: CH (occurrence: CH)
  Receive Date: 20131101
  Receipt Date: 20140127
  Transmission Date: 20141002
  Serious: Yes (Other)
  Sender: FDA-Public Use
  Company Number: CH-ROCHE-1294641

PATIENT
  Age: 25 Year
  Sex: Female

DRUGS (8)
  1. MABTHERA [Suspect]
     Indication: GRANULOMATOSIS WITH POLYANGIITIS
     Dosage: TOTAL OF FOUR DOSES RECEIVED.
     Route: 041
     Dates: start: 20121019, end: 20121109
  2. CO-TRIMOXAZOLE [Suspect]
     Indication: PRODUCT USED FOR UNKNOWN INDICATION
     Dosage: 800/160 MG UNTILL GESTATION WEEK 18
     Route: 048
     Dates: start: 20121018, end: 201212
  3. PREDNISONE [Suspect]
     Indication: GRANULOMATOSIS WITH POLYANGIITIS
     Route: 048
     Dates: start: 20121018
  4. IMUREK [Suspect]
     Indication: GRANULOMATOSIS WITH POLYANGIITIS
     Dosage: 50-100 MG DAILY; UNTIL POSTPARTAL
     Route: 048
     Dates: start: 20121118
  5. ARANESP [Suspect]
     Indication: PRODUCT USED FOR UNKNOWN INDICATION
     Dosage: 100-150MG
     Route: 058
     Dates: start: 20121018
  6. TRANDATE [Suspect]
     Indication: RENAL HYPERTENSION
     Dosage: 600-2400 MG TOTAL DAILY DOSE
     Route: 048
     Dates: start: 20121018
  7. ALDOMET [Suspect]
     Indication: RENAL HYPERTENSION
     Route: 048
     Dates: start: 201212
  8. MIFEGYNE [Concomitant]
     Route: 065

REACTIONS (13)
  - Foetal death [Unknown]
  - Pre-eclampsia [Unknown]
  - Glomerulonephritis rapidly progressive [Unknown]
  - Renal impairment [Unknown]
  - Polyarthritis [Unknown]
  - Eyelid oedema [Unknown]
  - Nausea [Unknown]
  - Vomiting [Unknown]
  - Headache [Unknown]
  - Oedema [Unknown]
  - Blood pressure increased [Unknown]
  - Rhinitis [Unknown]
  - Maternal exposure during pregnancy [Unknown]
